FAERS Safety Report 20709574 (Version 1)
Quarter: 2022Q2

REPORT INFORMATION
  Report Type: Report from Study
  Country: AT (occurrence: AT)
  Receive Date: 20220414
  Receipt Date: 20220414
  Transmission Date: 20220721
  Serious: Yes (Other)
  Sender: FDA-Public Use
  Company Number: None

PATIENT
  Age: 55 Year
  Sex: Male

DRUGS (5)
  1. MYCOPHENOLATE MOFETIL [Suspect]
     Active Substance: MYCOPHENOLATE MOFETIL
     Indication: Immunosuppressant drug therapy
     Route: 065
  2. TACROLIMUS [Suspect]
     Active Substance: TACROLIMUS
     Indication: Immunosuppressant drug therapy
     Dosage: 8 NG/ML
     Route: 065
  3. BELATACEPT [Suspect]
     Active Substance: BELATACEPT
     Indication: Immunosuppressant drug therapy
     Dosage: 5 MG/KG, Q6W
  4. ALEMTUZUMAB [Suspect]
     Active Substance: ALEMTUZUMAB
     Indication: Immunosuppressant drug therapy
     Route: 065
  5. BELATACEPT [Suspect]
     Active Substance: BELATACEPT
     Indication: Nephropathy
     Dosage: 5 MG/KG, Q6WK
     Route: 065

REACTIONS (11)
  - Skin papilloma [Unknown]
  - Acute kidney injury [Unknown]
  - Subdural haematoma [Unknown]
  - Transplant rejection [Unknown]
  - Urosepsis [Unknown]
  - Hypertension [Unknown]
  - Papilloma viral infection [Unknown]
  - Herpes virus infection [Unknown]
  - Drug ineffective [Unknown]
  - Cytomegalovirus infection [Unknown]
  - Enterococcal infection [Unknown]
